FAERS Safety Report 17105078 (Version 5)
Quarter: 2019Q4

REPORT INFORMATION
  Report Type: Report from Study
  Country: JP (occurrence: JP)
  Receive Date: 20191203
  Receipt Date: 20191230
  Transmission Date: 20200122
  Serious: Yes (Hospitalization)
  Sender: FDA-Public Use
  Company Number: JP-EISAI MEDICAL RESEARCH-EC-2019-066243

PATIENT
  Age: 63 Year
  Sex: Female
  Weight: 42 kg

DRUGS (13)
  1. LENVATINIB [Suspect]
     Active Substance: LENVATINIB
     Route: 048
     Dates: start: 20191105
  2. NEXIUM [Concomitant]
     Active Substance: ESOMEPRAZOLE MAGNESIUM
  3. CANDESARTAN. [Concomitant]
     Active Substance: CANDESARTAN
  4. DAIPHEN [Concomitant]
     Active Substance: SULFAMETHOXAZOLE\TRIMETHOPRIM
  5. LENVATINIB [Suspect]
     Active Substance: LENVATINIB
     Route: 048
     Dates: start: 20191021, end: 20191027
  6. PYDOXAL [Concomitant]
     Active Substance: PYRIDOXAL
  7. LENVATINIB [Suspect]
     Active Substance: LENVATINIB
     Indication: GALLBLADDER CANCER
     Route: 048
     Dates: start: 20190813, end: 20191014
  8. THYRADIN S [Concomitant]
     Active Substance: LEVOTHYROXINE SODIUM
  9. PREDNISOLONE. [Concomitant]
     Active Substance: PREDNISOLONE
  10. PASTARON [Concomitant]
     Active Substance: UREA
  11. NIVOLUMAB [Suspect]
     Active Substance: NIVOLUMAB
     Indication: GALLBLADDER CANCER
     Route: 041
     Dates: start: 20190813
  12. NIFEDIPINE CR [Concomitant]
     Active Substance: NIFEDIPINE
  13. PROPETO AND RINDERON [Concomitant]

REACTIONS (2)
  - Febrile neutropenia [Recovered/Resolved]
  - Biliary tract infection [Recovered/Resolved]

NARRATIVE: CASE EVENT DATE: 20191126
